FAERS Safety Report 9643435 (Version 2)
Quarter: 2013Q4

REPORT INFORMATION
  Report Type: Spontaneous
  Country: US (occurrence: US)
  Receive Date: 20131024
  Receipt Date: 20131209
  Transmission Date: 20140711
  Serious: Yes (Death)
  Sender: FDA-Public Use
  Company Number: US-B.I. PHARMACEUTICALS,INC./RIDGEFIELD-2013-BI-34007BP

PATIENT
  Age: 75 Year
  Sex: Male

DRUGS (3)
  1. PRADAXA [Suspect]
     Indication: ATRIAL FIBRILLATION
     Dosage: 300 MG
     Route: 048
     Dates: start: 2011
  2. UNSPECIFIED STATIN [Concomitant]
     Indication: HYPERCHOLESTEROLAEMIA
  3. UNSPECIFIED BETA BLOCKER [Concomitant]
     Indication: HYPERTENSION

REACTIONS (1)
  - Cardiac arrest [Fatal]
